FAERS Safety Report 19497736 (Version 8)
Quarter: 2022Q4

REPORT INFORMATION
  Report Type: Spontaneous
  Country: JP (occurrence: JP)
  Receive Date: 20210706
  Receipt Date: 20221220
  Transmission Date: 20230113
  Serious: Yes (Death, Hospitalization, Other)
  Sender: FDA-Public Use
  Company Number: JP-DSJP-DSJ-2021-114748

PATIENT
  Age: 79 Year
  Sex: Male
  Weight: 53 kg

DRUGS (12)
  1. ENHERTU [Suspect]
     Active Substance: FAM-TRASTUZUMAB DERUXTECAN-NXKI
     Indication: HER2 positive gastric cancer
     Dosage: 6.4 MG/KG, ONCE EVERY 3 WK
     Route: 041
     Dates: start: 20210419, end: 20210419
  2. SODIUM FERROUS CITRATE [Concomitant]
     Active Substance: SODIUM FERROUS CITRATE
     Dosage: 50 MG, BID, AFTER BREAKFAST AND DINNER
     Route: 048
     Dates: start: 20210427
  3. VITAMINS [Concomitant]
     Active Substance: VITAMINS
     Dosage: 1 G, QD, AFTER DINNER
     Route: 048
     Dates: start: 20210427
  4. ZINC [Concomitant]
     Active Substance: ZINC
     Dosage: 50 MG, TID, AFTER BREAKFAST, LUNCH AND DINNER
     Route: 048
     Dates: start: 20210427
  5. ENORAS [Concomitant]
     Dosage: 375 ML, QD, AFTER BREAKFAST
     Route: 048
     Dates: start: 20210427
  6. DECADRON [Concomitant]
     Active Substance: DEXAMETHASONE
     Dosage: 8 MG, QD, AFTER BREAKFAST
     Route: 048
     Dates: start: 20210427
  7. PRIMPERAN [Concomitant]
     Active Substance: METOCLOPRAMIDE HYDROCHLORIDE
     Dosage: 5 MG, AS NEEDED, AT FEELING QUEASY
     Route: 048
     Dates: start: 20210427
  8. PREDNISOLONE [Concomitant]
     Active Substance: PREDNISOLONE
     Dosage: 2.5 MG, QD, AFTER BREAKFAST
     Route: 048
     Dates: start: 20210427
  9. FOLIC ACID [Concomitant]
     Active Substance: FOLIC ACID
     Dosage: 5 MG, ONCE EVERY 1 WK, FRI: AFTER BREAKFAST
     Route: 048
     Dates: start: 20210427
  10. SILODOSIN [Concomitant]
     Active Substance: SILODOSIN
     Dosage: 4 MG, BID, AFTER BREAKFAST AND DINNER
     Route: 048
     Dates: start: 20210427
  11. CELECOXIB [Concomitant]
     Active Substance: CELECOXIB
     Dosage: 100 MG, BID, AFTER BREAKFAST AND DINNER
     Route: 048
     Dates: start: 20210427
  12. METHOTREXATE [Concomitant]
     Active Substance: METHOTREXATE
     Dosage: 2 MG, TUE: AFTER BREAKFAST AND DINNER, WED: AFTER BREAKFAST
     Route: 048
     Dates: start: 20210427

REACTIONS (7)
  - Neutrophil count decreased [Recovered/Resolved]
  - Platelet count decreased [Recovered/Resolved]
  - Diarrhoea [Recovered/Resolved]
  - Decreased appetite [Recovering/Resolving]
  - Anaemia [Recovering/Resolving]
  - Death [Fatal]
  - Ascites [Unknown]

NARRATIVE: CASE EVENT DATE: 20210101
